FAERS Safety Report 5864152-9 (Version None)
Quarter: 2008Q3

REPORT INFORMATION
  Report Type: 
  Country: None (occurrence: None)
  Receive Date: 20080829
  Receipt Date: 20080819
  Transmission Date: 20090109
  Serious: Yes (Hospitalization)
  Sender: FDA-Public Use
  Company Number: US-JNJFOC-20080804813

PATIENT
  Sex: Female
  Weight: 57.61 kg

DRUGS (3)
  1. DURAGESIC-100 [Suspect]
     Indication: PAIN
     Route: 062
  2. DULCOLAX [Suspect]
     Indication: CONSTIPATION
     Route: 048
  3. ARTHRITIS MEDICINE [Concomitant]
     Indication: ARTHRITIS
     Route: 048

REACTIONS (8)
  - ABDOMINAL PAIN [None]
  - ANXIETY [None]
  - ARTHRITIS [None]
  - CONSTIPATION [None]
  - DEPRESSION [None]
  - DIARRHOEA [None]
  - INSOMNIA [None]
  - ULCER HAEMORRHAGE [None]
